FAERS Safety Report 25535162 (Version 1)
Quarter: 2025Q3

REPORT INFORMATION
  Report Type: Spontaneous
  Country: US (occurrence: US)
  Receive Date: 20250709
  Receipt Date: 20250709
  Transmission Date: 20251020
  Serious: No
  Sender: Haleon PLC
  Company Number: US-HALEON-2251385

PATIENT

DRUGS (1)
  1. EXCEDRIN MIGRAINE [Suspect]
     Active Substance: ACETAMINOPHEN\ASPIRIN\CAFFEINE
     Indication: Headache
     Dates: start: 20250706

REACTIONS (2)
  - Toothache [Unknown]
  - Off label use [Unknown]
